FAERS Safety Report 9998536 (Version 1)
Quarter: 2014Q1

REPORT INFORMATION
  Report Type: Spontaneous
  Country: US (occurrence: US)
  Receive Date: 20140312
  Receipt Date: 20140312
  Transmission Date: 20141002
  Serious: No
  Sender: FDA-Public Use
  Company Number: US-BIOGENIDEC-2014BI018769

PATIENT
  Age: 24 Year
  Sex: Female

DRUGS (1)
  1. TECFIDERA [Suspect]
     Indication: MULTIPLE SCLEROSIS
     Route: 048
     Dates: start: 20140207

REACTIONS (6)
  - Back pain [Unknown]
  - Gait disturbance [Unknown]
  - Vision blurred [Unknown]
  - Diplopia [Unknown]
  - Neck pain [Unknown]
  - Flushing [Unknown]
